FAERS Safety Report 4558122-0 (Version None)
Quarter: 2005Q1

REPORT INFORMATION
  Report Type: 
  Country: None (occurrence: None)
  Receive Date: 20050103
  Receipt Date: 20041012
  Transmission Date: 20050727
  Serious: Yes (Other)
  Sender: FDA-Public Use
  Company Number: 2004UW19781

PATIENT
  Age: 58 Year
  Sex: Male

DRUGS (2)
  1. CRESTOR [Suspect]
     Indication: HYPERLIPIDAEMIA
     Dosage: 10 MG QD PO
     Route: 048
     Dates: start: 20040508
  2. TOPROL-XL [Concomitant]

REACTIONS (1)
  - HYPERTRIGLYCERIDAEMIA [None]
